FAERS Safety Report 14767312 (Version 1)
Quarter: 2018Q2

REPORT INFORMATION
  Report Type: Spontaneous
  Country: JP (occurrence: JP)
  Receive Date: 20180417
  Receipt Date: 20180417
  Transmission Date: 20180711
  Serious: No
  Sender: FDA-Public Use
  Company Number: JP-LUPIN PHARMACEUTICALS INC.-2017-07157

PATIENT
  Age: 3 Decade
  Sex: Female
  Weight: 46 kg

DRUGS (1)
  1. RIFAMPIN. [Suspect]
     Active Substance: RIFAMPIN
     Indication: TUBERCULOSIS
     Dosage: 450 MG, UNK
     Route: 065

REACTIONS (1)
  - Hepatic function abnormal [Unknown]
